FAERS Safety Report 19493575 (Version 7)
Quarter: 2025Q1

REPORT INFORMATION
  Report Type: Report from Study
  Country: CA (occurrence: CA)
  Receive Date: 20210705
  Receipt Date: 20250207
  Transmission Date: 20250409
  Serious: Yes (Hospitalization)
  Sender: PFIZER
  Company Number: CA-PFIZER INC-2021747771

PATIENT
  Age: 68 Year
  Sex: Male

DRUGS (23)
  1. RITUXIMAB [Suspect]
     Active Substance: RITUXIMAB
     Indication: Rheumatoid arthritis
     Route: 042
  2. RITUXIMAB [Suspect]
     Active Substance: RITUXIMAB
     Route: 042
  3. RITUXIMAB [Suspect]
     Active Substance: RITUXIMAB
     Route: 042
  4. ACETAMINOPHEN [Concomitant]
     Active Substance: ACETAMINOPHEN
     Indication: Premedication
     Route: 048
  5. ACETAMINOPHEN [Concomitant]
     Active Substance: ACETAMINOPHEN
     Route: 048
  6. ASPIRIN [Concomitant]
     Active Substance: ASPIRIN
     Route: 065
  7. ATENOLOL [Concomitant]
     Active Substance: ATENOLOL
  8. CANNABIS SATIVA FLOWERING TOP [Concomitant]
     Active Substance: CANNABIS SATIVA FLOWERING TOP
  9. CANNABIS SATIVA FLOWERING TOP [Concomitant]
     Active Substance: CANNABIS SATIVA FLOWERING TOP
  10. CLOPIDOGREL BISULFATE [Concomitant]
     Active Substance: CLOPIDOGREL BISULFATE
  11. DIPHENHYDRAMINE [Concomitant]
     Active Substance: DIPHENHYDRAMINE
     Indication: Premedication
     Route: 048
  12. FOLIC ACID [Concomitant]
     Active Substance: FOLIC ACID
  13. HYDROCHLOROTHIAZIDE [Concomitant]
     Active Substance: HYDROCHLOROTHIAZIDE
  14. LISINOPRIL [Concomitant]
     Active Substance: LISINOPRIL
  15. METHOTREXATE [Concomitant]
     Active Substance: METHOTREXATE
     Route: 048
  16. METHOTREXATE [Concomitant]
     Active Substance: METHOTREXATE
     Route: 037
  17. METHYLPREDNISOLONE [Concomitant]
     Active Substance: METHYLPREDNISOLONE
     Indication: Premedication
     Route: 042
  18. NIACIN [Concomitant]
     Active Substance: NIACIN
  19. NIFEDIPINE [Concomitant]
     Active Substance: NIFEDIPINE
  20. POTASSIUM [Concomitant]
     Active Substance: POTASSIUM
  21. ROSUVASTATIN CALCIUM [Concomitant]
     Active Substance: ROSUVASTATIN CALCIUM
  22. TYLENOL ARTHRITIS PAIN [Concomitant]
     Active Substance: ACETAMINOPHEN
  23. LOSEC [Concomitant]
     Active Substance: OMEPRAZOLE

REACTIONS (4)
  - Arthropathy [Recovered/Resolved]
  - Bronchitis [Recovered/Resolved]
  - Costochondritis [Recovered/Resolved]
  - Drug ineffective [Recovered/Resolved]
